FAERS Safety Report 4914236-4 (Version None)
Quarter: 2006Q1

REPORT INFORMATION
  Report Type: 
  Country: None (occurrence: None)
  Receive Date: 20060213
  Receipt Date: 20060127
  Transmission Date: 20060701
  Serious: Yes (Hospitalization)
  Sender: FDA-Public Use
  Company Number: 13376

PATIENT
  Age: 66 Year
  Sex: Male

DRUGS (6)
  1. CISPLATIN [Suspect]
     Indication: LUNG NEOPLASM MALIGNANT
     Dosage: 80 MG/M2 PER_CYCLE  IV
     Route: 042
     Dates: start: 20051024
  2. VINORELBINE [Suspect]
     Indication: LUNG NEOPLASM MALIGNANT
     Dates: start: 20051024
  3. ASPIRIN [Concomitant]
  4. LANSOPRAZOLE [Concomitant]
  5. ATORVASTATIN CALCIUM [Concomitant]
  6. LOPERAMIDE [Concomitant]

REACTIONS (5)
  - DIARRHOEA [None]
  - NEUTROPENIC SEPSIS [None]
  - PANCYTOPENIA [None]
  - TACHYCARDIA [None]
  - THROMBOCYTOPENIA [None]
